FAERS Safety Report 16338026 (Version 1)
Quarter: 2019Q2

REPORT INFORMATION
  Report Type: Spontaneous
  Country: US (occurrence: US)
  Receive Date: 20190521
  Receipt Date: 20190521
  Transmission Date: 20190711
  Serious: Yes (Hospitalization, Other)
  Sender: FDA-Public Use
  Company Number: US-INCYTE CORPORATION-2019IN004870

PATIENT

DRUGS (1)
  1. JAKAFI [Suspect]
     Active Substance: RUXOLITINIB
     Route: 065

REACTIONS (7)
  - Transplantation complication [Unknown]
  - Rash [Unknown]
  - Loss of consciousness [Unknown]
  - Hepatic enzyme increased [Unknown]
  - Gun shot wound [Unknown]
  - Haemorrhage [Unknown]
  - Blast cells present [Unknown]
